FAERS Safety Report 6580407-7 (Version None)
Quarter: 2010Q1

REPORT INFORMATION
  Report Type: 
  Country: None (occurrence: None)
  Receive Date: 20100212
  Receipt Date: 20100209
  Transmission Date: 20100710
  Serious: Yes (Other)
  Sender: FDA-Public Use
  Company Number: US-ABBOTT-10P-163-0622630-00

PATIENT

DRUGS (1)
  1. DEPAKOTE [Suspect]
     Indication: PATERNAL DRUGS AFFECTING FOETUS
     Route: 050

REACTIONS (2)
  - ABORTION SPONTANEOUS [None]
  - PATERNAL DRUGS AFFECTING FOETUS [None]
